FAERS Safety Report 6673553-0 (Version None)
Quarter: 2010Q1

REPORT INFORMATION
  Report Type: 
  Country: None (occurrence: None)
  Receive Date: 20100329
  Receipt Date: 20090926
  Transmission Date: 20100710
  Serious: Yes (Other)
  Sender: FDA-Public Use
  Company Number: 2009211863

PATIENT
  Age: 68 Year
  Sex: Male
  Weight: 124 kg

DRUGS (10)
  1. GEODON [Suspect]
     Indication: BIPOLAR DISORDER
     Dosage: 40 MG, 1X/DAY
     Dates: start: 20090401
  2. PRANDIN [Concomitant]
  3. QUINAPRIL/HYDROCHLOROTHIAZIDE (HYDROCHLOROTHIAZIDE, QUINAPRIL) [Concomitant]
  4. FENOFIBRATE [Concomitant]
  5. LIPITOR [Concomitant]
  6. WARFARIN SODIUM [Concomitant]
  7. LOVAZA [Concomitant]
  8. MULTIVITAMINS (ASCORBIC ACID, ERGOCALCIFEROL, FOLIC ACID, NICOTINAMIDE [Concomitant]
  9. .. [Concomitant]
  10. DIAZEPAM [Concomitant]

REACTIONS (10)
  - COGNITIVE DISORDER [None]
  - DELUSION [None]
  - DISCOMFORT [None]
  - DIZZINESS [None]
  - FEELING ABNORMAL [None]
  - INSOMNIA [None]
  - MANIA [None]
  - SEDATION [None]
  - WEIGHT DECREASED [None]
  - WEIGHT INCREASED [None]
